FAERS Safety Report 5096771-4 (Version None)
Quarter: 2006Q3

REPORT INFORMATION
  Report Type: 
  Country: None (occurrence: None)
  Receive Date: 20060831
  Receipt Date: 20060818
  Transmission Date: 20061208
  Serious: Yes (Disabling, Other)
  Sender: FDA-Public Use
  Company Number: 2006026755

PATIENT
  Sex: Male
  Weight: 68.0396 kg

DRUGS (5)
  1. VIAGRA [Suspect]
     Indication: ERECTILE DYSFUNCTION
     Dosage: 50 MG, AS NECESSARY
     Dates: end: 20060101
  2. WARFARIN SODIUM [Suspect]
     Indication: DRUG USE FOR UNKNOWN INDICATION
  3. DIGOXIN [Concomitant]
  4. ANTIHISTAMINES [Concomitant]
  5. VITAMINS [Concomitant]

REACTIONS (6)
  - BLINDNESS UNILATERAL [None]
  - DRUG EFFECT DECREASED [None]
  - EYE HAEMORRHAGE [None]
  - POLYPECTOMY [None]
  - RETINAL DEGENERATION [None]
  - TREATMENT NONCOMPLIANCE [None]
